FAERS Safety Report 13005686 (Version 1)
Quarter: 2016Q4

REPORT INFORMATION
  Report Type: Spontaneous
  Country: US (occurrence: US)
  Receive Date: 20161207
  Receipt Date: 20161207
  Transmission Date: 20170207
  Serious: No
  Sender: FDA-Public Use
  Company Number: US-ASTRAZENECA-2016SF24157

PATIENT
  Age: 69 Year
  Sex: Female
  Weight: 82.6 kg

DRUGS (11)
  1. VITAMIN Q10 [Concomitant]
     Route: 048
  2. OMEPRAZOLE. [Suspect]
     Active Substance: OMEPRAZOLE
     Indication: HIATUS HERNIA
     Route: 048
     Dates: start: 2006
  3. SYMBICORT [Suspect]
     Active Substance: BUDESONIDE\FORMOTEROL FUMARATE DIHYDRATE
     Indication: LUNG DISORDER
     Dosage: 160/4.5 MCG,2 INHALATIONS TWICE A DAY
     Route: 055
     Dates: start: 2014
  4. ATORVASTATIN [Concomitant]
     Active Substance: ATORVASTATIN
     Indication: BLOOD CHOLESTEROL ABNORMAL
     Route: 048
     Dates: start: 2008
  5. ALPRAZOLAM. [Concomitant]
     Active Substance: ALPRAZOLAM
     Indication: ANXIETY
     Route: 048
     Dates: start: 201603
  6. OMEPRAZOLE. [Suspect]
     Active Substance: OMEPRAZOLE
     Indication: GASTROOESOPHAGEAL REFLUX DISEASE
     Route: 048
     Dates: start: 2006
  7. CORTISONE [Concomitant]
     Active Substance: CORTISONE\HYDROCORTISONE
     Indication: SCIATIC NERVE INJURY
     Dosage: ONCE/SINGLE ADMINISTRATION
     Route: 065
     Dates: start: 201511
  8. CENTRUM WOMENS HEALTH MULTIVITAMIN [Concomitant]
     Indication: ROUTINE HEALTH MAINTENANCE
     Dosage: DAILY
     Route: 048
  9. SYMBICORT [Suspect]
     Active Substance: BUDESONIDE\FORMOTEROL FUMARATE DIHYDRATE
     Indication: DYSPNOEA
     Dosage: 160/4.5 MCG,2 INHALATIONS TWICE A DAY
     Route: 055
     Dates: start: 2014
  10. LOSARTAN. [Concomitant]
     Active Substance: LOSARTAN
     Indication: BLOOD PRESSURE ABNORMAL
     Route: 048
  11. PREDNISONE. [Concomitant]
     Active Substance: PREDNISONE
     Indication: SCIATIC NERVE INJURY
     Dosage: ONCE/SINGLE ADMINISTRATION
     Route: 065
     Dates: start: 201511

REACTIONS (12)
  - Cataract [Unknown]
  - Hypertension [Unknown]
  - Loss of consciousness [Unknown]
  - Hiatus hernia [Unknown]
  - Eye disorder [Unknown]
  - Product quality issue [Unknown]
  - Weight increased [Unknown]
  - Daydreaming [Unknown]
  - Product use issue [Unknown]
  - Sleep apnoea syndrome [Unknown]
  - Dyspnoea [Unknown]
  - Intentional device misuse [Unknown]

NARRATIVE: CASE EVENT DATE: 2007
